FAERS Safety Report 14111052 (Version 1)
Quarter: 2017Q4

REPORT INFORMATION
  Report Type: Spontaneous
  Country: IE (occurrence: IE)
  Receive Date: 20171020
  Receipt Date: 20171020
  Transmission Date: 20180321
  Serious: Yes (Hospitalization)
  Sender: FDA-Public Use
  Company Number: IE-LEO PHARMA-305011

PATIENT
  Age: 45 Year
  Sex: Male

DRUGS (1)
  1. DAIVOBET [Suspect]
     Active Substance: BETAMETHASONE DIPROPIONATE\CALCIPOTRIENE
     Indication: PSORIASIS
     Route: 061
     Dates: end: 20171010

REACTIONS (2)
  - Unresponsive to stimuli [Not Recovered/Not Resolved]
  - Cerebrovascular accident [Not Recovered/Not Resolved]

NARRATIVE: CASE EVENT DATE: 20171011
